FAERS Safety Report 10872398 (Version 1)
Quarter: 2015Q1

REPORT INFORMATION
  Report Type: Report from Study
  Country: ZA (occurrence: ZA)
  Receive Date: 20150226
  Receipt Date: 20150226
  Transmission Date: 20150721
  Serious: Yes (Death)
  Sender: FDA-Public Use
  Company Number: PHHY2013ZA020337

PATIENT
  Age: 73 Year
  Sex: Female

DRUGS (3)
  1. ACLASTA [Suspect]
     Active Substance: ZOLEDRONIC ACID
     Indication: OSTEOPOROSIS
     Dosage: 5 MG /100 ML, UKN
     Route: 042
     Dates: start: 2012, end: 2012
  2. ACLASTA [Suspect]
     Active Substance: ZOLEDRONIC ACID
     Dosage: 5 MG / 100 ML, UKN
     Route: 042
     Dates: start: 20130220, end: 20130220
  3. ACLASTA [Suspect]
     Active Substance: ZOLEDRONIC ACID
     Dosage: UNK
     Route: 042
     Dates: start: 201402, end: 201402

REACTIONS (3)
  - Skeletal injury [Unknown]
  - Pain in extremity [Unknown]
  - Death [Fatal]

NARRATIVE: CASE EVENT DATE: 201406
